FAERS Safety Report 5818569-9 (Version None)
Quarter: 2008Q3

REPORT INFORMATION
  Report Type: 
  Country: None (occurrence: None)
  Receive Date: 20080718
  Receipt Date: 20080708
  Transmission Date: 20090109
  Serious: Yes (Other)
  Sender: FDA-Public Use
  Company Number: 030762

PATIENT
  Age: 22 Year
  Sex: Female

DRUGS (2)
  1. CLARAVIS [Suspect]
     Dosage: 40 MG, QD IN AM; 30 MG, QD, IN PM
     Dates: start: 20080512, end: 20080707
  2. CLARAVIS [Suspect]
     Dosage: 40 MG, QD IN AM; 30 MG, QD, IN PM
     Dates: start: 20080512, end: 20080707

REACTIONS (3)
  - PREGNANCY ON ORAL CONTRACEPTIVE [None]
  - TREATMENT NONCOMPLIANCE [None]
  - UNINTENDED PREGNANCY [None]
